FAERS Safety Report 7131576-1 (Version None)
Quarter: 2010Q4

REPORT INFORMATION
  Report Type: 
  Country: None (occurrence: None)
  Receive Date: 20101201
  Receipt Date: 20101118
  Transmission Date: 20110411
  Serious: Yes (Hospitalization)
  Sender: FDA-Public Use
  Company Number: US-ELI_LILLY_AND_COMPANY-US201011002614

PATIENT
  Sex: Male
  Weight: 74.2 kg

DRUGS (8)
  1. PEMETREXED [Suspect]
     Indication: NON-SMALL CELL LUNG CANCER
     Dosage: 500 MG/M2, OTHER (EVERY 21 DAYS)
     Route: 042
     Dates: start: 20101020, end: 20101020
  2. CARBOPLATIN [Suspect]
     Indication: NON-SMALL CELL LUNG CANCER
     Dosage: 6 D/F (AUC), OTHER EVERY 21 DAYS
     Route: 042
     Dates: start: 20101020, end: 20101020
  3. FOLIC ACID [Concomitant]
     Indication: PROPHYLAXIS
     Dates: start: 20101118
  4. VITAMIN B-12 [Concomitant]
     Dates: start: 20101118
  5. PROCHLORPERAZINE [Concomitant]
     Indication: NAUSEA
     Dosage: UNK, AS NEEDED
     Dates: start: 20101020
  6. LORTADINE [Concomitant]
     Indication: HYPERSENSITIVITY
     Dates: start: 20100714
  7. OMEPRAZOLE [Concomitant]
     Dates: start: 20100716
  8. ASPIRIN [Concomitant]

REACTIONS (3)
  - CHEST PAIN [None]
  - PLEURAL EFFUSION [None]
  - SUPRAVENTRICULAR TACHYCARDIA [None]
